FAERS Safety Report 14721748 (Version 1)
Quarter: 2018Q2

REPORT INFORMATION
  Report Type: Spontaneous
  Country: US (occurrence: US)
  Receive Date: 20180401
  Receipt Date: 20180401
  Transmission Date: 20180711
  Serious: Yes (Other)
  Sender: FDA-Public Use
  Company Number: None

PATIENT
  Age: 41 Year
  Sex: Male
  Weight: 102.15 kg

DRUGS (2)
  1. FEXOFENADINE HCL [Suspect]
     Active Substance: FEXOFENADINE HYDROCHLORIDE
     Indication: SEASONAL ALLERGY
     Dosage: ?          QUANTITY:30 TABLET(S);?
     Route: 048
  2. FLONASE FOR CHILDREN [Concomitant]

REACTIONS (3)
  - Nightmare [None]
  - Cardiac flutter [None]
  - Atrial fibrillation [None]

NARRATIVE: CASE EVENT DATE: 20180330
